FAERS Safety Report 19307921 (Version 1)
Quarter: 2021Q2

REPORT INFORMATION
  Report Type: Spontaneous
  Country: US (occurrence: US)
  Receive Date: 20210525
  Receipt Date: 20210525
  Transmission Date: 20210717
  Serious: Yes (Other)
  Sender: FDA-Public Use
  Company Number: None

PATIENT
  Sex: Female

DRUGS (1)
  1. IMATINIB MES 400 MG TAB [Suspect]
     Active Substance: IMATINIB
     Indication: CARCINOID TUMOUR
     Route: 048
     Dates: start: 20200714

REACTIONS (2)
  - Product dose omission issue [None]
  - Neoplasm recurrence [None]
